FAERS Safety Report 12472926 (Version 3)
Quarter: 2023Q4

REPORT INFORMATION
  Report Type: Spontaneous
  Country: US (occurrence: US)
  Receive Date: 20160616
  Receipt Date: 20231031
  Transmission Date: 20240109
  Serious: Yes (Other)
  Sender: FDA-Public Use
  Company Number: US-BAYER-2016-109879

PATIENT
  Age: 69 Year
  Sex: Female

DRUGS (12)
  1. CALCIUM CARBONATE [Suspect]
     Active Substance: CALCIUM CARBONATE
     Indication: Abdominal discomfort
     Dosage: 3000 MG, TID
  2. OMEPRAZOLE [Concomitant]
     Active Substance: OMEPRAZOLE
     Dosage: 20 MG, QD
  3. SULFAMETHOXAZOLE AND TRIMETHOPRIM [Concomitant]
     Active Substance: SULFAMETHOXAZOLE\TRIMETHOPRIM
     Dosage: 160/800MG TIW
  4. ALENDRONIC ACID [Concomitant]
     Active Substance: ALENDRONIC ACID
     Dosage: UNK UNK, OW
  5. FISH OIL [Concomitant]
     Active Substance: FISH OIL
     Dosage: 1000 MG, QD
  6. LEVOTHYROXINE [Concomitant]
     Active Substance: LEVOTHYROXINE
     Dosage: 150 ?G, QD
  7. PRAVASTATIN [Concomitant]
     Active Substance: PRAVASTATIN
     Dosage: 20 MG, QD
  8. TUMS [Concomitant]
     Active Substance: CALCIUM CARBONATE
  9. CALCIUM [Suspect]
     Active Substance: CALCIUM
     Dosage: 1 DF, QD
  10. CHOLECALCIFEROL [Suspect]
     Active Substance: CHOLECALCIFEROL
     Dosage: 1 DF, QD
  11. RITUXIMAB [Concomitant]
     Active Substance: RITUXIMAB
     Indication: Acute kidney injury
  12. PREDNISONE [Concomitant]
     Active Substance: PREDNISONE
     Indication: Acute kidney injury

REACTIONS (4)
  - Milk-alkali syndrome [Recovering/Resolving]
  - Intentional product misuse [None]
  - Medication error [Unknown]
  - Prescription drug used without a prescription [Unknown]
